FAERS Safety Report 21875755 (Version 1)
Quarter: 2023Q1

REPORT INFORMATION
  Report Type: Spontaneous
  Country: US (occurrence: US)
  Receive Date: 20230118
  Receipt Date: 20230118
  Transmission Date: 20230418
  Serious: Yes (Other)
  Sender: FDA-Public Use
  Company Number: US-NOVOPROD-1011622

PATIENT
  Sex: Female
  Weight: 90.718 kg

DRUGS (1)
  1. WEGOVY [Suspect]
     Active Substance: SEMAGLUTIDE
     Indication: Obesity
     Dosage: 1.7 MG
     Route: 058
     Dates: end: 2022

REACTIONS (3)
  - Ovarian cancer [Unknown]
  - Post-acute COVID-19 syndrome [Unknown]
  - Intentional dose omission [Unknown]
